FAERS Safety Report 7689696-9 (Version None)
Quarter: 2011Q3

REPORT INFORMATION
  Report Type: 
  Country: None (occurrence: None)
  Receive Date: 20110817
  Receipt Date: 20101124
  Transmission Date: 20111222
  Serious: Yes (Other)
  Sender: FDA-Public Use
  Company Number: US-BAYER-201011296NA

PATIENT
  Age: 56 Year
  Sex: Female
  Weight: 64.853 kg

DRUGS (13)
  1. MAGNEVIST [Suspect]
     Indication: NUCLEAR MAGNETIC RESONANCE IMAGING
     Dosage: 15 ML (DAILY DOSE), , INTRAVENOUS
     Route: 042
     Dates: start: 20051012, end: 20051012
  2. UNSPECIFIED GADOLINIUM-BASED CONTRAST AGENT [Suspect]
  3. VICODIN [Concomitant]
  4. ADVAIR DISKUS 100/50 [Concomitant]
  5. ELAVIL [Suspect]
  6. DEPAKOTE [Concomitant]
  7. LASIX [Concomitant]
  8. NEURONTIN [Concomitant]
  9. FLEXERIL [Concomitant]
  10. UNSPECIFIED GADOLINIUM-BASED CONTRAST AGENT [Suspect]
     Indication: NUCLEAR MAGNETIC RESONANCE IMAGING BRAIN
     Dates: start: 20081101, end: 20081101
  11. PREDNISONE [Concomitant]
  12. UNSPECIFIED GADOLINIUM-BASED CONTRAST AGENT [Suspect]
     Indication: NUCLEAR MAGNETIC RESONANCE IMAGING
  13. ATENOLOL [Concomitant]

REACTIONS (30)
  - SCAR [None]
  - HYPERKERATOSIS [None]
  - ANHEDONIA [None]
  - NEPHROGENIC SYSTEMIC FIBROSIS [None]
  - RASH [None]
  - ALOPECIA [None]
  - SKIN HYPERPIGMENTATION [None]
  - SKIN EXFOLIATION [None]
  - SKIN INDURATION [None]
  - JOINT STIFFNESS [None]
  - EXCORIATION [None]
  - SKIN OEDEMA [None]
  - MYALGIA [None]
  - SCLERAL DISORDER [None]
  - ASTHENIA [None]
  - GENERAL PHYSICAL HEALTH DETERIORATION [None]
  - DEFORMITY [None]
  - PRURITUS [None]
  - SKIN HYPERTROPHY [None]
  - RASH PAPULAR [None]
  - OEDEMA PERIPHERAL [None]
  - ARTHRALGIA [None]
  - MORPHOEA [None]
  - SKIN BURNING SENSATION [None]
  - LICHEN PLANUS [None]
  - SKIN DISCOLOURATION [None]
  - SKIN PLAQUE [None]
  - PAIN [None]
  - SKIN TIGHTNESS [None]
  - DEPRESSION [None]
